FAERS Safety Report 11890200 (Version 1)
Quarter: 2016Q1

REPORT INFORMATION
  Report Type: Spontaneous
  Country: CH (occurrence: CH)
  Receive Date: 20160105
  Receipt Date: 20160105
  Transmission Date: 20160526
  Serious: Yes (Hospitalization)
  Sender: FDA-Public Use
  Company Number: CH-LPDUSPRD-20151060

PATIENT
  Age: 40 Year
  Sex: Female

DRUGS (1)
  1. FERINJECT [Suspect]
     Active Substance: FERRIC CARBOXYMALTOSE
     Dosage: 500 MG
     Route: 041

REACTIONS (5)
  - Nausea [Unknown]
  - Heart rate increased [Unknown]
  - Incorrect drug administration rate [Unknown]
  - Feeling hot [Unknown]
  - Head discomfort [Unknown]

NARRATIVE: CASE EVENT DATE: 20151110
